FAERS Safety Report 11281296 (Version 1)
Quarter: 2015Q3

REPORT INFORMATION
  Report Type: Spontaneous
  Country: US (occurrence: US)
  Receive Date: 20150717
  Receipt Date: 20150717
  Transmission Date: 20151125
  Serious: No
  Sender: FDA-Public Use
  Company Number: US-BAYER-2015-376334

PATIENT
  Age: 8 Year
  Sex: Female

DRUGS (1)
  1. CLARITIN REDITABS [Suspect]
     Active Substance: LORATADINE
     Indication: DERMATITIS CONTACT
     Route: 048

REACTIONS (2)
  - Product use issue [Unknown]
  - Extra dose administered [None]

NARRATIVE: CASE EVENT DATE: 20150708
